FAERS Safety Report 15361565 (Version 2)
Quarter: 2018Q4

REPORT INFORMATION
  Report Type: Spontaneous
  Country: JP (occurrence: JP)
  Receive Date: 20180907
  Receipt Date: 20181203
  Transmission Date: 20190204
  Serious: Yes (Death)
  Sender: FDA-Public Use
  Company Number: JP-CELGENEUS-JPN-20180901112

PATIENT
  Age: 76 Year
  Sex: Male

DRUGS (15)
  1. VIDAZA [Suspect]
     Active Substance: AZACITIDINE
     Dosage: 60 MILLIGRAM
     Route: 058
     Dates: start: 20180129, end: 20180202
  2. VIDAZA [Suspect]
     Active Substance: AZACITIDINE
     Dosage: 60 MILLIGRAM
     Route: 058
     Dates: start: 20180723, end: 20180727
  3. VIDAZA [Suspect]
     Active Substance: AZACITIDINE
     Dosage: 120 MILLIGRAM
     Route: 065
     Dates: start: 20170612, end: 20170616
  4. VIDAZA [Suspect]
     Active Substance: AZACITIDINE
     Dosage: 60 MILLIGRAM
     Route: 058
     Dates: start: 20170919, end: 20170925
  5. VIDAZA [Suspect]
     Active Substance: AZACITIDINE
     Dosage: 60 MILLIGRAM
     Route: 058
     Dates: start: 20171023, end: 20171027
  6. VIDAZA [Suspect]
     Active Substance: AZACITIDINE
     Dosage: 60 MILLIGRAM
     Route: 058
     Dates: start: 20171127, end: 20171201
  7. VIDAZA [Suspect]
     Active Substance: AZACITIDINE
     Dosage: 60 MILLIGRAM
     Route: 058
     Dates: start: 20180326, end: 20180330
  8. VIDAZA [Suspect]
     Active Substance: AZACITIDINE
     Dosage: 60 MILLIGRAM
     Route: 058
     Dates: start: 20180423, end: 20180427
  9. VIDAZA [Suspect]
     Active Substance: AZACITIDINE
     Dosage: 60 MILLIGRAM
     Route: 058
     Dates: start: 20180625, end: 20180629
  10. VIDAZA [Suspect]
     Active Substance: AZACITIDINE
     Dosage: 60 MILLIGRAM
     Route: 058
     Dates: start: 20170821, end: 20170825
  11. VIDAZA [Suspect]
     Active Substance: AZACITIDINE
     Dosage: 60 MILLIGRAM
     Route: 058
     Dates: start: 20170724, end: 20170728
  12. VIDAZA [Suspect]
     Active Substance: AZACITIDINE
     Dosage: 60 MILLIGRAM
     Route: 058
     Dates: start: 20180528, end: 20180601
  13. VIDAZA [Suspect]
     Active Substance: AZACITIDINE
     Indication: PRODUCT USED FOR UNKNOWN INDICATION
     Dosage: 120 MG
     Route: 058
     Dates: start: 20170515, end: 20180521
  14. VIDAZA [Suspect]
     Active Substance: AZACITIDINE
     Dosage: 60 MILLIGRAM
     Route: 058
     Dates: start: 20180226, end: 20180302
  15. VIDAZA [Suspect]
     Active Substance: AZACITIDINE
     Dosage: 60 MILLIGRAM
     Route: 058
     Dates: start: 20171225, end: 20171229

REACTIONS (1)
  - Blast cell count increased [Fatal]

NARRATIVE: CASE EVENT DATE: 20180813
